FAERS Safety Report 5519361-5 (Version None)
Quarter: 2007Q4

REPORT INFORMATION
  Report Type: 
  Country: None (occurrence: None)
  Receive Date: 20071116
  Receipt Date: 20070316
  Transmission Date: 20080405
  Serious: No
  Sender: FDA-Public Use
  Company Number: A0643543A

PATIENT
  Age: 61 Year
  Sex: Female

DRUGS (10)
  1. COREG CR [Suspect]
     Dosage: 10MG PER DAY
     Route: 048
     Dates: start: 20070311, end: 20070314
  2. SYNTHROID [Concomitant]
  3. NEURONTIN [Concomitant]
  4. DESYREL [Concomitant]
  5. PROTONIX [Concomitant]
  6. VALIUM [Concomitant]
  7. CRESTOR [Concomitant]
  8. AMBIEN [Concomitant]
     Route: 048
  9. PHENERGAN HCL [Concomitant]
  10. TYLENOL [Concomitant]

REACTIONS (6)
  - ABDOMINAL PAIN [None]
  - ASTHENIA [None]
  - DIARRHOEA [None]
  - MUSCLE SPASMS [None]
  - NAUSEA [None]
  - RETCHING [None]
